FAERS Safety Report 20083614 (Version 1)
Quarter: 2021Q4

REPORT INFORMATION
  Report Type: Spontaneous
  Country: US (occurrence: US)
  Receive Date: 20211118
  Receipt Date: 20211118
  Transmission Date: 20220303
  Serious: Yes (Death, Disabling, Other)
  Sender: FDA-Public Use
  Company Number: US-SA-SAC20211116000054

PATIENT
  Sex: Male

DRUGS (1)
  1. ZANTAC [Suspect]
     Active Substance: RANITIDINE HYDROCHLORIDE

REACTIONS (7)
  - Death [Fatal]
  - Gastric cancer [Unknown]
  - Disability [Unknown]
  - Pain [Unknown]
  - Anxiety [Unknown]
  - Anhedonia [Unknown]
  - Injury [Unknown]
